FAERS Safety Report 11715851 (Version 2)
Quarter: 2015Q4

REPORT INFORMATION
  Report Type: Spontaneous
  Country: US (occurrence: US)
  Receive Date: 20151104
  Receipt Date: 20151110
  Transmission Date: 20160304
  Serious: No
  Sender: FDA-Public Use
  Company Number: US-ELI_LILLY_AND_COMPANY-US201106003884

PATIENT
  Age: 78 Year
  Sex: Female
  Weight: 49 kg

DRUGS (10)
  1. FORTEO [Suspect]
     Active Substance: TERIPARATIDE
     Indication: OSTEOPOROSIS
     Dosage: 20 UG, QD
     Route: 065
     Dates: start: 201104
  2. ACTONEL [Concomitant]
     Active Substance: RISEDRONATE SODIUM
  3. CALCIUM [Concomitant]
     Active Substance: CALCIUM
  4. FORTEO [Suspect]
     Active Substance: TERIPARATIDE
     Dosage: 20 UG, QD
     Dates: end: 20110905
  5. ANTIBIOTICS [Concomitant]
     Active Substance: UNSPECIFIED INGREDIENT
  6. DIOVAN [Concomitant]
     Active Substance: VALSARTAN
  7. TRILIPIX [Concomitant]
     Active Substance: FENOFIBRIC ACID
  8. FORTEO [Suspect]
     Active Substance: TERIPARATIDE
     Dosage: 20 UG, QD
     Route: 065
  9. FORTEO [Suspect]
     Active Substance: TERIPARATIDE
     Dosage: 20 UG, QD
     Route: 065
  10. FORTEO [Suspect]
     Active Substance: TERIPARATIDE
     Dosage: 20 UG, QD
     Dates: start: 20110912, end: 20111009

REACTIONS (19)
  - Fatigue [Recovering/Resolving]
  - Sleep disorder due to a general medical condition [Unknown]
  - Oesophageal pain [Recovered/Resolved]
  - Haemorrhage [Unknown]
  - Dysgeusia [Unknown]
  - Feeling abnormal [Not Recovered/Not Resolved]
  - Blood calcium increased [Recovering/Resolving]
  - Headache [Unknown]
  - Nausea [Recovered/Resolved]
  - Abdominal discomfort [Recovered/Resolved]
  - Gastrointestinal disorder [Recovering/Resolving]
  - Tooth abscess [Unknown]
  - Tooth disorder [Unknown]
  - Pain in extremity [Recovered/Resolved]
  - Injury associated with device [Unknown]
  - Asthenia [Unknown]
  - Muscle spasms [Unknown]
  - Intentional product misuse [Recovered/Resolved]
  - Malaise [Unknown]

NARRATIVE: CASE EVENT DATE: 20110904
